FAERS Safety Report 22270983 (Version 9)
Quarter: 2024Q1

REPORT INFORMATION
  Report Type: Report from Study
  Country: US (occurrence: US)
  Receive Date: 20230501
  Receipt Date: 20240225
  Transmission Date: 20240410
  Serious: Yes (Hospitalization)
  Sender: FDA-Public Use
  Company Number: US-BoehringerIngelheim-2023-BI-230140

PATIENT
  Age: 84 Year
  Sex: Male

DRUGS (1)
  1. OFEV [Suspect]
     Active Substance: NINTEDANIB
     Indication: Chronic obstructive pulmonary disease
     Route: 048

REACTIONS (14)
  - Haematochezia [Unknown]
  - Blood iron decreased [Unknown]
  - Oxygen saturation decreased [Unknown]
  - Internal haemorrhage [Recovered/Resolved]
  - Rectal haemorrhage [Unknown]
  - Diverticulum [Unknown]
  - Dyspnoea [Recovering/Resolving]
  - Nausea [Not Recovered/Not Resolved]
  - Asthenia [Recovering/Resolving]
  - Fatigue [Recovering/Resolving]
  - Diarrhoea [Recovering/Resolving]
  - Oesophageal ulcer [Unknown]
  - Intentional product use issue [Unknown]
  - Gastrointestinal motility disorder [Unknown]

NARRATIVE: CASE EVENT DATE: 20230201
